FAERS Safety Report 21434368 (Version 2)
Quarter: 2022Q4

REPORT INFORMATION
  Report Type: Spontaneous
  Country: TR (occurrence: TR)
  Receive Date: 20221010
  Receipt Date: 20221017
  Transmission Date: 20230112
  Serious: Yes (Other)
  Sender: FDA-Public Use
  Company Number: TR-UCBSA-2022058472

PATIENT
  Age: 43 Year
  Sex: Female

DRUGS (1)
  1. CIMZIA [Suspect]
     Active Substance: CERTOLIZUMAB PEGOL
     Indication: Ankylosing spondylitis
     Dosage: ONCE, EVERY 2 WEEKS
     Dates: start: 20220111

REACTIONS (3)
  - Pustule [Recovered/Resolved]
  - Genital abscess [Recovered/Resolved]
  - Weight increased [Recovered/Resolved]

NARRATIVE: CASE EVENT DATE: 20220101
